FAERS Safety Report 5094258-6 (Version None)
Quarter: 2006Q3

REPORT INFORMATION
  Report Type: 
  Country: None (occurrence: None)
  Receive Date: 20060831
  Receipt Date: 20060419
  Transmission Date: 20061208
  Serious: Yes (Hospitalization)
  Sender: FDA-Public Use
  Company Number: JP-JPN-A200602909

PATIENT
  Age: 89 Year
  Sex: Female
  Weight: 50 kg

DRUGS (6)
  1. PAXIL [Suspect]
     Indication: DEPRESSION
     Dosage: 10MG SEE DOSAGE TEXT
     Route: 048
     Dates: start: 20060123, end: 20060314
  2. ARICEPT [Suspect]
     Indication: MEMORY IMPAIRMENT
     Dosage: 5MG PER DAY
     Route: 048
     Dates: start: 20060128
  3. ARTIST [Suspect]
     Indication: HYPERTENSION
     Dosage: 2.5MG TWICE PER DAY
     Dates: start: 19920101
  4. BLOPRESS [Suspect]
     Indication: HYPERTENSION
     Dosage: 8MG PER DAY
     Route: 048
     Dates: start: 19920101
  5. ALFAROL [Suspect]
     Indication: OSTEOPOROSIS
     Dosage: 1MCG PER DAY
     Route: 048
  6. LUPRAC [Suspect]
     Indication: OSTEOPOROSIS
     Dosage: 8MG PER DAY
     Route: 048

REACTIONS (8)
  - ASPIRATION [None]
  - CARDIAC FAILURE CONGESTIVE [None]
  - CARDIOMEGALY [None]
  - COORDINATION ABNORMAL [None]
  - DEPRESSED LEVEL OF CONSCIOUSNESS [None]
  - PYREXIA [None]
  - SOMNOLENCE [None]
  - URINARY TRACT INFECTION [None]
